FAERS Safety Report 21045114 (Version 1)
Quarter: 2022Q3

REPORT INFORMATION
  Report Type: Spontaneous
  Country: NL (occurrence: NL)
  Receive Date: 20220705
  Receipt Date: 20220705
  Transmission Date: 20221027
  Serious: Yes (Hospitalization)
  Sender: FDA-Public Use
  Company Number: None

PATIENT
  Age: 54 Year
  Sex: Male
  Weight: 85 kg

DRUGS (10)
  1. DUPILUMAB [Suspect]
     Active Substance: DUPILUMAB
     Indication: Asthma
     Dosage: 300 MG, QOW
     Route: 058
     Dates: start: 20211224, end: 20220407
  2. MONTELUKAST [Concomitant]
     Active Substance: MONTELUKAST SODIUM
     Dosage: COATED TABLET, 10 MG (MILLIGRAMS)
  3. CITALOPRAM [Concomitant]
     Active Substance: CITALOPRAM HYDROBROMIDE
     Dosage: COATED TABLET, 20 MG (MILLIGRAMS)
  4. FLUTICASONE [Concomitant]
     Active Substance: FLUTICASONE
     Dosage: NASAL DROPS, 1 MG/ML (MILLIGRAMS PER MILLILITER)
  5. LOSARTAN [Concomitant]
     Active Substance: LOSARTAN
     Dosage: FILM-COATED TABLET, 100 MG (MILLIGRAMS)
  6. RIVAROXABAN [Concomitant]
     Active Substance: RIVAROXABAN
     Dosage: TABLET, 10 MG (MILLIGRAM)
  7. FLUTICASONE PROPIONATE\SALMETEROL XINAFOATE [Concomitant]
     Active Substance: FLUTICASONE PROPIONATE\SALMETEROL XINAFOATE
     Dosage: AEROSOL, 25/250 ?G/DOSE (MICROGRAMS PER DOSE)
  8. CICLESONIDE [Concomitant]
     Active Substance: CICLESONIDE
     Dosage: AEROSOL, 160 ?G/DOSE (MICROGRAMS PER DOSE)
  9. LEVOCETIRIZINE [Concomitant]
     Active Substance: LEVOCETIRIZINE
     Dosage: FILM-COATED TABLET, 5 MG (MILLIGRAMS)
  10. ESOMEPRAZOL [ESOMEPRAZOLE SODIUM] [Concomitant]
     Dosage: GASTRO-RESISTANT CAPSULE, 20 MG (MILLIGRAMS)

REACTIONS (4)
  - Eosinophil count increased [Recovered/Resolved]
  - Malaise [Recovered/Resolved]
  - Pyrexia [Recovered/Resolved]
  - Lung infiltration [Recovered/Resolved]

NARRATIVE: CASE EVENT DATE: 20220404
